FAERS Safety Report 7496611-X (Version None)
Quarter: 2011Q2

REPORT INFORMATION
  Report Type: 
  Country: None (occurrence: None)
  Receive Date: 20110523
  Receipt Date: 20110513
  Transmission Date: 20111010
  Serious: Yes (Hospitalization)
  Sender: FDA-Public Use
  Company Number: BR-ASTRAZENECA-2011SE29786

PATIENT
  Age: 70 Year
  Sex: Male
  Weight: 68 kg

DRUGS (4)
  1. SERTRALINE HYDROCHLORIDE [Concomitant]
     Indication: DEPRESSION
     Route: 048
     Dates: start: 20091101
  2. ATACAND [Suspect]
     Route: 048
     Dates: start: 20110301
  3. ATACAND HCT [Suspect]
     Indication: HYPERTENSION
     Dosage: 16+12.5 MG HALF TABLET OD
     Route: 048
     Dates: start: 20070101, end: 20110301
  4. OMEPRAZOLE [Concomitant]
     Indication: GASTRITIS
     Route: 048
     Dates: end: 20110401

REACTIONS (4)
  - PROSTATE CANCER [None]
  - URINARY INCONTINENCE [None]
  - ABDOMINAL PAIN UPPER [None]
  - DYSPEPSIA [None]
